FAERS Safety Report 11252975 (Version 1)
Quarter: 2015Q3

REPORT INFORMATION
  Report Type: Spontaneous
  Country: US (occurrence: None)
  Receive Date: 20150707
  Receipt Date: 20150707
  Transmission Date: 20151125
  Serious: Yes (Other)
  Sender: FDA-Public Use
  Company Number: KAD201507-002016

PATIENT
  Sex: Female

DRUGS (2)
  1. RIBAVIRIN (RIBAVIRIN) [Suspect]
     Active Substance: RIBAVIRIN
     Dates: start: 2014
  2. SOVALDI [Concomitant]
     Active Substance: SOFOSBUVIR
     Dates: start: 2014

REACTIONS (1)
  - Hepatic cirrhosis [None]
